FAERS Safety Report 25701763 (Version 1)
Quarter: 2025Q3

REPORT INFORMATION
  Report Type: Report from Study
  Country: CA (occurrence: CA)
  Receive Date: 20250819
  Receipt Date: 20250819
  Transmission Date: 20251020
  Serious: Yes (Hospitalization)
  Sender: TEVA
  Company Number: CA-TEVA-VS-3362534

PATIENT
  Age: 34 Year
  Sex: Female

DRUGS (5)
  1. MYCOPHENOLATE MOFETIL [Suspect]
     Active Substance: MYCOPHENOLATE MOFETIL
     Indication: Neuromyelitis optica spectrum disorder
     Route: 048
  2. GABAPENTIN [Concomitant]
     Active Substance: GABAPENTIN
     Indication: Product used for unknown indication
     Route: 048
  3. RITUXIMAB [Suspect]
     Active Substance: RITUXIMAB
     Indication: Neuromyelitis optica spectrum disorder
     Route: 042
  4. AMITRIPTYLINE [Concomitant]
     Active Substance: AMITRIPTYLINE
     Indication: Product used for unknown indication
  5. SATRALIZUMAB [Suspect]
     Active Substance: SATRALIZUMAB
     Indication: Neuromyelitis optica spectrum disorder
     Route: 058

REACTIONS (15)
  - Drug intolerance [Not Recovered/Not Resolved]
  - Muscular weakness [Not Recovered/Not Resolved]
  - Stress [Not Recovered/Not Resolved]
  - Poor quality sleep [Not Recovered/Not Resolved]
  - Malaise [Not Recovered/Not Resolved]
  - Fatigue [Not Recovered/Not Resolved]
  - Eye pain [Not Recovered/Not Resolved]
  - Iron deficiency anaemia [Not Recovered/Not Resolved]
  - Constipation [Not Recovered/Not Resolved]
  - Neuralgia [Not Recovered/Not Resolved]
  - Optic neuritis [Not Recovered/Not Resolved]
  - Vision blurred [Not Recovered/Not Resolved]
  - Hypersensitivity [Not Recovered/Not Resolved]
  - Asthenia [Not Recovered/Not Resolved]
  - Hypoaesthesia [Not Recovered/Not Resolved]
